FAERS Safety Report 24686112 (Version 1)
Quarter: 2024Q4

REPORT INFORMATION
  Report Type: Spontaneous
  Country: US (occurrence: None)
  Receive Date: 20241129
  Receipt Date: 20241129
  Transmission Date: 20250114
  Serious: Yes (Hospitalization)
  Sender: Public
  Company Number: None

PATIENT
  Age: 66 Year
  Sex: Male
  Weight: 85 kg

DRUGS (9)
  1. TAFINLAR [Suspect]
     Active Substance: DABRAFENIB MESYLATE
     Indication: Thyroid cancer
     Dosage: FREQUENCY : TWICE A DAY;?
     Route: 048
     Dates: start: 202411
  2. HYDROCHLOROTHIAZIDE [Concomitant]
  3. OLMESARTAN MEDOXOMIL [Concomitant]
  4. ONDANSETRON [Concomitant]
  5. POTASSIUM CHLORAIDE [Concomitant]
  6. PROMETHEGAN [Concomitant]
  7. ROSUVASTATIN [Concomitant]
  8. ASPIRIN [Concomitant]
     Active Substance: ASPIRIN
  9. MAGNESIUM [Concomitant]

REACTIONS (5)
  - Headache [None]
  - Vomiting [None]
  - Pyrexia [None]
  - Chills [None]
  - Blood pressure fluctuation [None]

NARRATIVE: CASE EVENT DATE: 20241101
